FAERS Safety Report 21583212 (Version 1)
Quarter: 2022Q4

REPORT INFORMATION
  Report Type: Spontaneous
  Country: US (occurrence: None)
  Receive Date: 20221110
  Receipt Date: 20221110
  Transmission Date: 20230112
  Serious: Yes (Hospitalization)
  Sender: FDA-Public Use
  Company Number: None

PATIENT
  Sex: Male

DRUGS (1)
  1. CAPECITABINE [Suspect]
     Active Substance: CAPECITABINE
     Indication: Cholangiocarcinoma
     Dosage: 2000MG TWICE DAILY ORAL?
     Route: 048
     Dates: start: 20220802

REACTIONS (2)
  - Escherichia infection [None]
  - Haematological infection [None]
